FAERS Safety Report 23481329 (Version 2)
Quarter: 2024Q1

REPORT INFORMATION
  Report Type: Spontaneous
  Country: JP (occurrence: JP)
  Receive Date: 20240205
  Receipt Date: 20240305
  Transmission Date: 20240410
  Serious: Yes (Other)
  Sender: FDA-Public Use
  Company Number: JP-002147023-NVSJ2024JP001585

PATIENT
  Age: 56 Year
  Sex: Female

DRUGS (9)
  1. LUCENTIS [Suspect]
     Active Substance: RANIBIZUMAB
     Indication: Diabetic retinal oedema
     Dosage: 10 MILLIGRAM PER MILLILITRE
     Route: 050
     Dates: start: 20200602
  2. LUCENTIS [Suspect]
     Active Substance: RANIBIZUMAB
     Dosage: 10 MILLIGRAM PER MILLILITRE
     Route: 050
  3. LUCENTIS [Suspect]
     Active Substance: RANIBIZUMAB
     Dosage: 10 MILLIGRAM PER MILLILITRE
     Route: 050
  4. LUCENTIS [Suspect]
     Active Substance: RANIBIZUMAB
     Dosage: 10 MILLIGRAM PER MILLILITRE
     Route: 050
  5. LUCENTIS [Suspect]
     Active Substance: RANIBIZUMAB
     Dosage: 10 MILLIGRAM PER MILLILITRE
     Route: 050
  6. LUCENTIS [Suspect]
     Active Substance: RANIBIZUMAB
     Dosage: 10 MILLIGRAM PER MILLILITRE
     Route: 050
  7. LUCENTIS [Suspect]
     Active Substance: RANIBIZUMAB
     Dosage: 10 MILLIGRAM PER MILLILITRE
     Route: 050
  8. LUCENTIS [Suspect]
     Active Substance: RANIBIZUMAB
     Dosage: 10 MILLIGRAM PER MILLILITRE
     Route: 050
  9. LUCENTIS [Suspect]
     Active Substance: RANIBIZUMAB
     Dosage: 10 MILLIGRAM PER MILLILITRE
     Route: 050
     Dates: start: 20210310, end: 20210310

REACTIONS (2)
  - Vitreous haemorrhage [Recovered/Resolved]
  - Visual acuity reduced [Recovered/Resolved]

NARRATIVE: CASE EVENT DATE: 20210310
